FAERS Safety Report 21137091 (Version 5)
Quarter: 2022Q3

REPORT INFORMATION
  Report Type: Spontaneous
  Country: RO (occurrence: RO)
  Receive Date: 20220727
  Receipt Date: 20220926
  Transmission Date: 20221027
  Serious: Yes (Hospitalization, Other)
  Sender: FDA-Public Use
  Company Number: RO-MEDO2008-L202207050

PATIENT
  Age: 12 Year
  Sex: Female

DRUGS (7)
  1. ESOMEPRAZOLE [Suspect]
     Active Substance: ESOMEPRAZOLE
     Indication: Oesophagitis
     Dosage: UNK
     Route: 065
  2. ESOMEPRAZOLE [Suspect]
     Active Substance: ESOMEPRAZOLE
     Indication: Oesophagitis
     Dosage: UNK
     Route: 048
  3. PANTOPRAZOLE [Suspect]
     Active Substance: PANTOPRAZOLE
     Indication: Product used for unknown indication
     Dosage: UNK
     Route: 042
  4. CEFTRIAXONE [Suspect]
     Active Substance: CEFTRIAXONE
     Indication: Antibiotic prophylaxis
     Dosage: 100 MG/KG, QD
     Route: 065
  5. OCTREOTIDE [Concomitant]
     Active Substance: OCTREOTIDE
     Indication: Anaemia
     Dosage: 2 ?G/KG/H HAEMOSTASIS OBTAIN DOSE RDC 50 PC. 12H
     Route: 042
  6. OCTREOTIDE [Concomitant]
     Active Substance: OCTREOTIDE
     Dosage: 2 MG/KG, BID
     Route: 065
  7. CEFTRIAXONE [Concomitant]
     Active Substance: CEFTRIAXONE
     Dosage: UNK
     Route: 065

REACTIONS (2)
  - Cholelithiasis [Unknown]
  - Thrombocytopenia [Unknown]
